FAERS Safety Report 15990973 (Version 1)
Quarter: 2019Q1

REPORT INFORMATION
  Report Type: Report from Study
  Country: US (occurrence: US)
  Receive Date: 20190221
  Receipt Date: 20190221
  Transmission Date: 20190418
  Serious: Yes (Hospitalization)
  Sender: FDA-Public Use
  Company Number: US-CELGENEUS-USA-20190106423

PATIENT
  Age: 71 Year
  Sex: Male
  Weight: 65.83 kg

DRUGS (3)
  1. ABRAXANE [Suspect]
     Active Substance: PACLITAXEL
     Indication: OROPHARYNGEAL CANCER
     Dosage: 171 MILLIGRAM
     Route: 041
     Dates: start: 20181128, end: 20190123
  2. CARBOPLATIN. [Concomitant]
     Active Substance: CARBOPLATIN
     Indication: NEOPLASM MALIGNANT
     Dosage: 367.62 MILLIGRAM
     Route: 065
     Dates: start: 20181128, end: 20190116
  3. NIVOLUMAB [Suspect]
     Active Substance: NIVOLUMAB
     Indication: OROPHARYNGEAL CANCER
     Dosage: 360 MILLIGRAM
     Route: 041
     Dates: start: 20181128, end: 20190123

REACTIONS (2)
  - Pneumoperitoneum [Unknown]
  - Dehydration [Unknown]

NARRATIVE: CASE EVENT DATE: 20190118
